FAERS Safety Report 6410461-4 (Version None)
Quarter: 2009Q4

REPORT INFORMATION
  Report Type: 
  Country: None (occurrence: None)
  Receive Date: 20091022
  Receipt Date: 20091012
  Transmission Date: 20100525
  Serious: Yes (Hospitalization, Other)
  Sender: FDA-Public Use
  Company Number: FR-ABBOTT-09P-056-0592788-00

PATIENT
  Sex: Male
  Weight: 60 kg

DRUGS (2)
  1. HUMIRA [Suspect]
     Indication: CROHN'S DISEASE
     Route: 058
     Dates: start: 20081127, end: 20090722
  2. DEPAKENE [Concomitant]
     Indication: EPILEPSY

REACTIONS (3)
  - ANAEMIA [None]
  - CONJUNCTIVITIS [None]
  - SKIN INFECTION [None]
